FAERS Safety Report 4723129-7 (Version None)
Quarter: 2005Q3

REPORT INFORMATION
  Report Type: 
  Country: None (occurrence: None)
  Receive Date: 20050719
  Receipt Date: 20040707
  Transmission Date: 20060218
  Serious: Yes (Other)
  Sender: FDA-Public Use
  Company Number: 2004222775US

PATIENT
  Age: 77 Year
  Sex: Female
  Weight: 77.1 kg

DRUGS (10)
  1. CELEBREX [Suspect]
     Indication: RHEUMATOID ARTHRITIS
     Dosage: 200 MG, QD
     Dates: start: 20030101, end: 20030101
  2. REMICADE [Concomitant]
  3. DONNATAL (HYOSCYAMINE SULFATE) [Concomitant]
  4. HUMALOG [Concomitant]
  5. LANTUS [Concomitant]
  6. CARDIZEM [Concomitant]
  7. LOPRESSOR [Concomitant]
  8. LOZOL [Concomitant]
  9. METHOTREXATE [Concomitant]
  10. CORTISONE ACETATE TAB [Concomitant]

REACTIONS (3)
  - GASTRIC HAEMORRHAGE [None]
  - GASTRITIS [None]
  - NAUSEA [None]
